FAERS Safety Report 21293268 (Version 1)
Quarter: 2022Q3

REPORT INFORMATION
  Report Type: Spontaneous
  Country: US (occurrence: US)
  Receive Date: 20220905
  Receipt Date: 20220905
  Transmission Date: 20221027
  Serious: Yes (Other)
  Sender: FDA-Public Use
  Company Number: US-SA-SAC20220902001379

PATIENT
  Sex: Male

DRUGS (1)
  1. ZANTAC [Suspect]
     Active Substance: RANITIDINE HYDROCHLORIDE
     Dosage: OVER THE COUNTER ZANTAC FROM APPROXIMATELY 2008 TO 201 1;PRESCRIPTION ZANTAC FROM APPROXIMATELY 2008
     Route: 048
     Dates: start: 2008, end: 2011

REACTIONS (1)
  - Prostate cancer [Unknown]
